FAERS Safety Report 19212652 (Version 2)
Quarter: 2021Q3

REPORT INFORMATION
  Report Type: Spontaneous
  Country: AR (occurrence: AR)
  Receive Date: 20210504
  Receipt Date: 20210716
  Transmission Date: 20211014
  Serious: Yes (Other)
  Sender: FDA-Public Use
  Company Number: AR-PFIZER INC-2021449092

PATIENT
  Age: 66 Year
  Sex: Female

DRUGS (1)
  1. XELJANZ XR [Suspect]
     Active Substance: TOFACITINIB CITRATE
     Indication: RHEUMATOID ARTHRITIS
     Dosage: 11 MG, ONCE A DAY
     Dates: start: 20181222, end: 202101

REACTIONS (4)
  - Arthritis infective [Unknown]
  - Post procedural infection [Unknown]
  - White blood cell count decreased [Unknown]
  - Device related infection [Unknown]

NARRATIVE: CASE EVENT DATE: 202101
